FAERS Safety Report 19271358 (Version 1)
Quarter: 2021Q2

REPORT INFORMATION
  Report Type: Spontaneous
  Country: US (occurrence: US)
  Receive Date: 20210518
  Receipt Date: 20210518
  Transmission Date: 20210717
  Serious: Yes (Hospitalization, Other)
  Sender: FDA-Public Use
  Company Number: US-SA-2021SA156681

PATIENT

DRUGS (4)
  1. ASPIRIN. [Concomitant]
     Active Substance: ASPIRIN
  2. MIDODRINE [Concomitant]
     Active Substance: MIDODRINE
  3. PLAVIX [Suspect]
     Active Substance: CLOPIDOGREL BISULFATE
  4. COUMADIN [Concomitant]
     Active Substance: WARFARIN SODIUM

REACTIONS (17)
  - Swelling [Unknown]
  - Encephalopathy [Recovering/Resolving]
  - Fall [Recovering/Resolving]
  - Contusion [Unknown]
  - Seizure [Recovering/Resolving]
  - Intra-abdominal fluid collection [Recovering/Resolving]
  - Presyncope [Recovering/Resolving]
  - Haematoma [Recovering/Resolving]
  - Electrocardiogram QT prolonged [Recovering/Resolving]
  - Dizziness [Recovering/Resolving]
  - Gait disturbance [Recovering/Resolving]
  - Vomiting [Recovering/Resolving]
  - Mass [Recovering/Resolving]
  - Syncope [Recovering/Resolving]
  - Hypotension [Recovering/Resolving]
  - Asthenia [Recovering/Resolving]
  - Ecchymosis [Recovering/Resolving]

NARRATIVE: CASE EVENT DATE: 20200923
